FAERS Safety Report 4370126-X (Version None)
Quarter: 2004Q2

REPORT INFORMATION
  Report Type: 
  Country: None (occurrence: None)
  Receive Date: 20040527
  Receipt Date: 20040524
  Transmission Date: 20050107
  Serious: Yes (Death, Life-Threatening, Hospitalization)
  Sender: FDA-Public Use
  Company Number: 200411111GDS

PATIENT
  Age: 71 Year
  Sex: Male
  Weight: 52 kg

DRUGS (2)
  1. ASPIRIN [Suspect]
     Indication: ATRIAL FIBRILLATION
     Dosage: 100 MG, TOTAL DAILY; ORAL
     Route: 048
     Dates: start: 20020201, end: 20020701
  2. BUFFERIN [Suspect]
     Indication: ATRIAL FIBRILLATION
     Dosage: 81 MG, UNK; ORAL
     Route: 048
     Dates: start: 19990101, end: 20020101

REACTIONS (18)
  - ABDOMINAL PAIN UPPER [None]
  - ABDOMINAL TENDERNESS [None]
  - ANAEMIA [None]
  - CEREBRAL INFARCTION [None]
  - CYST RUPTURE [None]
  - FAECAL INCONTINENCE [None]
  - HAEMORRHAGIC ASCITES [None]
  - METABOLIC ACIDOSIS [None]
  - PERITONEAL ADHESIONS [None]
  - PERITONEAL HAEMORRHAGE [None]
  - POST PROCEDURAL COMPLICATION [None]
  - POSTOPERATIVE FEVER [None]
  - PSEUDOCYST [None]
  - PYREXIA [None]
  - SHOCK [None]
  - SPLENIC CYST [None]
  - SPLENIC INFARCTION [None]
  - WHITE BLOOD CELL COUNT INCREASED [None]
